FAERS Safety Report 6444138-6 (Version None)
Quarter: 2009Q4

REPORT INFORMATION
  Report Type: 
  Country: None (occurrence: None)
  Receive Date: 20091118
  Receipt Date: 20091109
  Transmission Date: 20100525
  Serious: No
  Sender: FDA-Public Use
  Company Number: US-JNJFOC-20091103078

PATIENT
  Sex: Female
  Weight: 69.85 kg

DRUGS (3)
  1. FENTANYL CITRATE [Suspect]
     Indication: CANCER PAIN
     Route: 062
     Dates: start: 20091001
  2. NEXIUM [Concomitant]
     Indication: ULCER
     Route: 048
     Dates: start: 20091020
  3. ZOFRAN [Concomitant]
     Indication: NAUSEA
     Route: 060
     Dates: start: 20091001

REACTIONS (3)
  - DRUG ADMINISTERED AT INAPPROPRIATE SITE [None]
  - PRODUCT ADHESION ISSUE [None]
  - WRONG TECHNIQUE IN DRUG USAGE PROCESS [None]
